FAERS Safety Report 16780890 (Version 1)
Quarter: 2019Q3

REPORT INFORMATION
  Report Type: Spontaneous
  Country: CA (occurrence: CA)
  Receive Date: 20190906
  Receipt Date: 20190906
  Transmission Date: 20191005
  Serious: Yes (Other)
  Sender: FDA-Public Use
  Company Number: CA-PFIZER INC-2019386564

PATIENT
  Age: 26 Year
  Sex: Female

DRUGS (4)
  1. TINZAPARIN [Suspect]
     Active Substance: TINZAPARIN
     Dosage: 4500 IU, ONCE DAILY
     Route: 058
  2. HEPARIN SODIUM. [Suspect]
     Active Substance: HEPARIN SODIUM
     Indication: PROPHYLAXIS
     Dosage: 5000 IU, UNK
     Route: 042
  3. TINZAPARIN [Suspect]
     Active Substance: TINZAPARIN
     Dosage: 10000 IU, ONCE DAILY
     Route: 058
  4. ALBUREX [Suspect]
     Active Substance: ALBUMIN HUMAN
     Indication: FLUID REPLACEMENT
     Dosage: 1 DF, ONCE DAILY
     Route: 042

REACTIONS (1)
  - Embolism [Unknown]
